FAERS Safety Report 8771391 (Version 14)
Quarter: 2014Q2

REPORT INFORMATION
  Report Type: Spontaneous
  Country: US (occurrence: US)
  Receive Date: 20120906
  Receipt Date: 20140630
  Transmission Date: 20141212
  Serious: Yes (Death, Hospitalization)
  Sender: FDA-Public Use
  Company Number: US-GLAXOSMITHKLINE-A0992157A

PATIENT
  Age: 61 Year
  Sex: Female
  Weight: 78.2 kg

DRUGS (7)
  1. FLOLAN [Suspect]
     Indication: PULMONARY ARTERIAL HYPERTENSION
     Dosage: 80NGKM CONTINUOUS
     Route: 042
     Dates: start: 20000228
  2. LANOXIN [Suspect]
     Indication: PRODUCT USED FOR UNKNOWN INDICATION
     Route: 065
  3. WARFARIN [Concomitant]
  4. FUROSEMIDE [Concomitant]
  5. COREG [Concomitant]
  6. UNKNOWN [Concomitant]
  7. FLOMAX [Concomitant]

REACTIONS (11)
  - Eye haemorrhage [Recovered/Resolved]
  - Altered state of consciousness [Recovering/Resolving]
  - Transient ischaemic attack [Unknown]
  - Convulsion [Unknown]
  - Nasopharyngitis [Recovered/Resolved]
  - Overdose [Recovered/Resolved]
  - Toxicity to various agents [Recovered/Resolved]
  - Confusional state [Recovering/Resolving]
  - Weight decreased [Unknown]
  - Hospice care [Unknown]
  - Pulmonary arterial hypertension [Fatal]
